FAERS Safety Report 5398066-8 (Version None)
Quarter: 2007Q3

REPORT INFORMATION
  Report Type: 
  Country: None (occurrence: None)
  Receive Date: 20070726
  Receipt Date: 20070713
  Transmission Date: 20080115
  Serious: Yes (Hospitalization)
  Sender: FDA-Public Use
  Company Number: US-ELI_LILLY_AND_COMPANY-US200707003570

PATIENT
  Age: 35 Year
  Sex: Female

DRUGS (5)
  1. STRATTERA [Suspect]
     Dosage: 10 MG, DAILY (1/D)
     Route: 048
     Dates: start: 20070615, end: 20070621
  2. STRATTERA [Suspect]
     Dosage: 18 MG, DAILY (1/D)
     Route: 048
     Dates: start: 20070622, end: 20070628
  3. STRATTERA [Suspect]
     Dosage: 25 MG, DAILY (1/D)
     Route: 048
     Dates: start: 20070629, end: 20070701
  4. STRATTERA [Suspect]
     Dosage: 50 MG, DAILY (1/D)
     Route: 048
     Dates: start: 20070701, end: 20070709
  5. DEPAKOTE [Concomitant]
     Dosage: 500 MG, UNK

REACTIONS (2)
  - BIPOLAR I DISORDER [None]
  - SUICIDAL IDEATION [None]
